FAERS Safety Report 25592100 (Version 2)
Quarter: 2025Q3

REPORT INFORMATION
  Report Type: Report from Study
  Country: CA (occurrence: CA)
  Receive Date: 20250722
  Receipt Date: 20250826
  Transmission Date: 20251020
  Serious: Yes (Hospitalization, Other)
  Sender: TAKEDA
  Company Number: CA-TAKEDA-2019TUS044619

PATIENT
  Sex: Female

DRUGS (28)
  1. VEDOLIZUMAB [Suspect]
     Active Substance: VEDOLIZUMAB
     Indication: Crohn^s disease
  2. VEDOLIZUMAB [Suspect]
     Active Substance: VEDOLIZUMAB
  3. VEDOLIZUMAB [Suspect]
     Active Substance: VEDOLIZUMAB
  4. VEDOLIZUMAB [Suspect]
     Active Substance: VEDOLIZUMAB
     Indication: Crohn^s disease
     Dosage: 108 MILLIGRAM, Q2WEEKS
     Dates: start: 20250319
  5. SPIRIVA [Concomitant]
     Active Substance: TIOTROPIUM BROMIDE MONOHYDRATE
  6. VENTOLIN [Concomitant]
     Active Substance: ALBUTEROL SULFATE
  7. PREVACID [Concomitant]
     Active Substance: LANSOPRAZOLE
  8. PREVACID [Concomitant]
     Active Substance: LANSOPRAZOLE
     Dosage: 60 MILLIGRAM, QD
  9. ALLOPURINOL [Concomitant]
     Active Substance: ALLOPURINOL
     Indication: Nephrolithiasis
  10. MACRODANTIN [Concomitant]
     Active Substance: NITROFURANTOIN
     Indication: Cystitis
  11. ENTOCORT [Concomitant]
     Active Substance: BUDESONIDE
     Dosage: 6 MILLIGRAM, QD
  12. INFLIXIMAB [Concomitant]
     Active Substance: INFLIXIMAB
  13. SANDOSTATIN LAR DEPOT [Concomitant]
     Active Substance: OCTREOTIDE ACETATE
     Dosage: 20 MILLIGRAM, MONTHLY
  14. Centrum forte [Concomitant]
     Dosage: UNK UNK, BID
  15. SODIUM CHLORIDE [Concomitant]
     Active Substance: SODIUM CHLORIDE
  16. IMODIUM [Concomitant]
     Active Substance: LOPERAMIDE HYDROCHLORIDE
     Dosage: UNK UNK, QID
  17. MAGNESIUM [Concomitant]
     Active Substance: MAGNESIUM
     Dosage: 500 MILLIGRAM, BID
  18. Ca [Concomitant]
     Dosage: UNK UNK, QD
  19. KCL [Concomitant]
     Active Substance: POTASSIUM CHLORIDE
     Dosage: 16 MILLIEQUIVALENT, QD
  20. VITAMIN D NOS [Concomitant]
     Active Substance: CHOLECALCIFEROL\ERGOCALCIFEROL
     Dosage: UNK UNK, 1/WEEK
  21. ALENDRONATE [Concomitant]
     Active Substance: ALENDRONATE SODIUM
  22. ASPIRIN [Concomitant]
     Active Substance: ASPIRIN
  23. LIPITOR [Concomitant]
     Active Substance: ATORVASTATIN CALCIUM
  24. FLAGYL [Concomitant]
     Active Substance: METRONIDAZOLE\METRONIDAZOLE HYDROCHLORIDE
     Dosage: 500 MILLIGRAM, BID
  25. CIPRO [Concomitant]
     Active Substance: CIPROFLOXACIN HYDROCHLORIDE
     Dosage: UNK UNK, BID
  26. RIFAXIMIN [Concomitant]
     Active Substance: RIFAXIMIN
     Dosage: 550 MILLIGRAM, TID
  27. FLUCONAZOLE [Concomitant]
     Active Substance: FLUCONAZOLE
     Dosage: 150 MILLIGRAM, QD
  28. CREON [Concomitant]
     Active Substance: PANCRELIPASE AMYLASE\PANCRELIPASE LIPASE\PANCRELIPASE PROTEASE
     Dosage: UNK UNK, TID

REACTIONS (23)
  - Abdominal abscess [Unknown]
  - Gastrointestinal fistula [Unknown]
  - Acute kidney injury [Unknown]
  - Gastrointestinal stoma complication [Unknown]
  - Hypomagnesaemia [Unknown]
  - Cholestasis [Unknown]
  - Stoma site abscess [Unknown]
  - Pancreatic failure [Unknown]
  - Hepatic cytolysis [Unknown]
  - Abdominal discomfort [Unknown]
  - Ear congestion [Not Recovered/Not Resolved]
  - Gastrointestinal microorganism overgrowth [Unknown]
  - Chronic gastritis [Unknown]
  - Vaginal infection [Unknown]
  - Malnutrition [Unknown]
  - Short-bowel syndrome [Unknown]
  - Osteoporosis [Unknown]
  - Diarrhoea [Unknown]
  - Weight decreased [Unknown]
  - Malabsorption [Unknown]
  - Nasopharyngitis [Unknown]
  - Cough [Not Recovered/Not Resolved]
  - Fatigue [Unknown]
